FAERS Safety Report 8474852-2 (Version None)
Quarter: 2012Q2

REPORT INFORMATION
  Report Type: 
  Country: None (occurrence: None)
  Receive Date: 20120628
  Receipt Date: 20120619
  Transmission Date: 20120825
  Serious: Yes (Other)
  Sender: FDA-Public Use
  Company Number: FR-BRISTOL-MYERS SQUIBB COMPANY-16544512

PATIENT
  Age: 77 Year
  Sex: Female

DRUGS (8)
  1. ZOLPIDEM [Concomitant]
     Route: 048
     Dates: start: 20120127
  2. GINKOR FORT [Concomitant]
     Route: 048
  3. TRANSIPEG [Concomitant]
     Route: 048
     Dates: start: 20111104
  4. ONGLYZA [Suspect]
     Indication: TYPE 2 DIABETES MELLITUS
     Route: 048
     Dates: start: 20120421, end: 20120422
  5. GLIMEPIRIDE [Concomitant]
     Indication: DIABETES MELLITUS
     Dosage: INCREASED TO 3MG
     Route: 048
     Dates: start: 20120127
  6. ACETAMINOPHEN W/ CODEINE [Concomitant]
     Route: 048
     Dates: start: 20120420, end: 20120518
  7. VALSARTAN  AND HYDROCHLOROTHIAZIDE [Concomitant]
     Dosage: 1DF:160/25MG
     Route: 048
  8. NICARDIPINE HYDROCHLORIDE [Concomitant]
     Route: 048
     Dates: start: 20110716

REACTIONS (1)
  - PARAESTHESIA [None]
